FAERS Safety Report 8008660-3 (Version None)
Quarter: 2011Q4

REPORT INFORMATION
  Report Type: 
  Country: None (occurrence: None)
  Receive Date: 20111227
  Receipt Date: 20111216
  Transmission Date: 20120403
  Serious: Yes (Hospitalization)
  Sender: FDA-Public Use
  Company Number: FR-MERCK-1112USA02738

PATIENT
  Age: 47 Year
  Sex: Male

DRUGS (1)
  1. ZOCOR [Suspect]
     Indication: DYSLIPIDAEMIA
     Route: 048
     Dates: start: 20110501, end: 20110724

REACTIONS (1)
  - LUNG DISORDER [None]
